FAERS Safety Report 24369842 (Version 2)
Quarter: 2025Q1

REPORT INFORMATION
  Report Type: Spontaneous
  Country: JP (occurrence: JP)
  Receive Date: 20240927
  Receipt Date: 20250119
  Transmission Date: 20250408
  Serious: Yes (Other)
  Sender: GLAXOSMITHKLINE
  Company Number: None

PATIENT

DRUGS (2)
  1. SERETIDE [Suspect]
     Active Substance: FLUTICASONE PROPIONATE\SALMETEROL XINAFOATE
     Indication: Asthma
  2. EPINASTINE [Concomitant]
     Active Substance: EPINASTINE

REACTIONS (3)
  - Eosinophilic pneumonia [Recovered/Resolved]
  - Asthma [Recovered/Resolved]
  - Chronic eosinophilic rhinosinusitis [Unknown]
